FAERS Safety Report 10960607 (Version 2)
Quarter: 2015Q3

REPORT INFORMATION
  Report Type: Spontaneous
  Country: US (occurrence: US)
  Receive Date: 20150327
  Receipt Date: 20150821
  Transmission Date: 20151125
  Serious: No
  Sender: FDA-Public Use
  Company Number: US-009507513-1503USA010694

PATIENT
  Sex: Male

DRUGS (4)
  1. AMBIEN [Concomitant]
     Active Substance: ZOLPIDEM TARTRATE
     Dosage: UNK
     Route: 065
  2. BELSOMRA [Suspect]
     Active Substance: SUVOREXANT
     Dosage: 20 MG, QD
     Route: 048
  3. RAPAFLO [Concomitant]
     Active Substance: SILODOSIN
     Route: 065
  4. BELSOMRA [Suspect]
     Active Substance: SUVOREXANT
     Indication: INSOMNIA
     Dosage: 10 UNK, UNK
     Route: 048
     Dates: start: 20150313, end: 20150320

REACTIONS (8)
  - Drug ineffective [Unknown]
  - Road traffic accident [Recovering/Resolving]
  - Amnesia [Recovered/Resolved]
  - Confusional state [Recovered/Resolved]
  - Concussion [Recovering/Resolving]
  - Disorientation [Recovered/Resolved]
  - Somnolence [Recovering/Resolving]
  - Poor quality sleep [Unknown]

NARRATIVE: CASE EVENT DATE: 20150320
